FAERS Safety Report 6505684-X (Version None)
Quarter: 2009Q4

REPORT INFORMATION
  Report Type: 
  Country: None (occurrence: None)
  Receive Date: 20091218
  Receipt Date: 20091214
  Transmission Date: 20100525
  Serious: Yes (Hospitalization)
  Sender: FDA-Public Use
  Company Number: B0579691A

PATIENT
  Sex: Male

DRUGS (8)
  1. LAMICTAL [Suspect]
     Indication: EPILEPSY
     Dosage: 50MG PER DAY
     Route: 048
     Dates: start: 20090523, end: 20090605
  2. LAMICTAL [Suspect]
     Dosage: 50MG TWICE PER DAY
     Route: 048
     Dates: start: 20090606, end: 20090611
  3. LEXIN [Concomitant]
     Indication: CONVULSION PROPHYLAXIS
     Dosage: 400MG PER DAY
     Route: 048
     Dates: start: 20080527, end: 20080811
  4. EXCEGRAN [Concomitant]
     Indication: CONVULSION PROPHYLAXIS
     Dosage: 100MG PER DAY
     Route: 048
     Dates: start: 20081226, end: 20090202
  5. TEGRETOL [Concomitant]
     Dosage: 600MG PER DAY
     Route: 048
  6. PREDNISOLONE [Concomitant]
     Route: 065
  7. LEXIN [Concomitant]
     Dosage: 100MG PER DAY
     Route: 048
     Dates: start: 20080812
  8. EXCEGRAN [Concomitant]
     Dosage: 100MG PER DAY
     Route: 048
     Dates: start: 20080203, end: 20090522

REACTIONS (9)
  - CHOLESTASIS [None]
  - DRUG RASH WITH EOSINOPHILIA AND SYSTEMIC SYMPTOMS [None]
  - HEPATIC FIBROSIS [None]
  - HEPATIC FUNCTION ABNORMAL [None]
  - HEPATIC STEATOSIS [None]
  - HEPATITIS [None]
  - JAUNDICE [None]
  - PYREXIA [None]
  - RASH [None]
